FAERS Safety Report 25779366 (Version 2)
Quarter: 2025Q3

REPORT INFORMATION
  Report Type: Report from Study
  Country: PR (occurrence: PR)
  Receive Date: 20250909
  Receipt Date: 20250915
  Transmission Date: 20251021
  Serious: No
  Sender: ABBVIE
  Company Number: PR-ABBVIE-6446743

PATIENT
  Age: 25 Year
  Sex: Female
  Weight: 53.523 kg

DRUGS (6)
  1. HUMIRA [Suspect]
     Active Substance: ADALIMUMAB
     Indication: Crohn^s disease
     Dosage: SOLUTION FOR INJECTION IN PRE-FILLED PEN
     Route: 058
     Dates: start: 201608
  2. HUMIRA [Suspect]
     Active Substance: ADALIMUMAB
     Route: 058
  3. VITAMINS [Concomitant]
     Active Substance: VITAMINS
     Indication: Vitamin supplementation
  4. BACTROBAN [Concomitant]
     Active Substance: MUPIROCIN CALCIUM
     Indication: Psoriasis
  5. MIRALAX [Concomitant]
     Active Substance: POLYETHYLENE GLYCOL 3350
     Indication: Gastrointestinal motility disorder
  6. ELOCON [Concomitant]
     Active Substance: MOMETASONE FUROATE
     Indication: Psoriasis

REACTIONS (4)
  - Product storage error [Not Recovered/Not Resolved]
  - Headache [Recovered/Resolved]
  - Poor quality product administered [Unknown]
  - Psoriasis [Recovering/Resolving]

NARRATIVE: CASE EVENT DATE: 20200101
